FAERS Safety Report 8569628-1 (Version None)
Quarter: 2012Q3

REPORT INFORMATION
  Report Type: 
  Country: None (occurrence: None)
  Receive Date: 20120803
  Receipt Date: 20120328
  Transmission Date: 20120928
  Serious: No
  Sender: FDA-Public Use
  Company Number: US-ABBOTT-12P-163-0919268-00

PATIENT
  Sex: Male
  Weight: 95.794 kg

DRUGS (1)
  1. NIASPAN [Suspect]
     Indication: LOW DENSITY LIPOPROTEIN INCREASED
     Dosage: EXTENDED RELEASE, TAKING IT AT NIGHT
     Dates: start: 20120321

REACTIONS (6)
  - CONSTIPATION [None]
  - GASTROINTESTINAL SOUNDS ABNORMAL [None]
  - SOMNOLENCE [None]
  - ASTHENIA [None]
  - FLATULENCE [None]
  - DIARRHOEA [None]
